FAERS Safety Report 19196351 (Version 2)
Quarter: 2021Q2

REPORT INFORMATION
  Report Type: Spontaneous
  Country: DE (occurrence: DE)
  Receive Date: 20210429
  Receipt Date: 20210507
  Transmission Date: 20210717
  Serious: Yes (Death, Other)
  Sender: FDA-Public Use
  Company Number: DE-TOPROL-2021000078

PATIENT
  Age: 35 Year
  Sex: Female
  Weight: 80 kg

DRUGS (5)
  1. SOLIAN [Suspect]
     Active Substance: AMISULPRIDE
     Dosage: 100 MG 1?0?1
     Route: 048
     Dates: start: 20200731
  2. QUETIAPINE. [Suspect]
     Active Substance: QUETIAPINE
     Dosage: 300 MG 0?0?0?1
     Route: 048
     Dates: start: 2021
  3. PROMETHAZINE [Suspect]
     Active Substance: PROMETHAZINE HYDROCHLORIDE
     Dosage: 25 MG 1 ST MAX 44X/24 H 4 H
     Route: 048
     Dates: start: 20200731
  4. METOPROLOL SUCCINATE. [Suspect]
     Active Substance: METOPROLOL SUCCINATE
     Dosage: 23,5 MG 1?0?0?0
     Route: 048
     Dates: start: 20140913
  5. BIPRETERAX N [Suspect]
     Active Substance: INDAPAMIDE\PERINDOPRIL ARGININE
     Dosage: 5 MG / 1,25 MG 1?0?0?0
     Route: 048
     Dates: start: 20140913

REACTIONS (3)
  - Death [Fatal]
  - Drug interaction [Unknown]
  - Multiple organ dysfunction syndrome [Fatal]

NARRATIVE: CASE EVENT DATE: 2021
